FAERS Safety Report 12693033 (Version 2)
Quarter: 2016Q4

REPORT INFORMATION
  Report Type: Spontaneous
  Country: ES (occurrence: ES)
  Receive Date: 20160829
  Receipt Date: 20161014
  Transmission Date: 20170207
  Serious: Yes (Life-Threatening, Hospitalization)
  Sender: FDA-Public Use
  Company Number: ES-SUN PHARMACEUTICAL INDUSTRIES LTD-2016R1-122975

PATIENT
  Age: 48 Year
  Sex: Female

DRUGS (1)
  1. OXYCODONE [Suspect]
     Active Substance: OXYCODONE
     Indication: FIBROMYALGIA
     Dosage: UNK
     Route: 065

REACTIONS (8)
  - Insomnia [Recovering/Resolving]
  - Suicide attempt [Recovered/Resolved]
  - Depressed mood [Recovering/Resolving]
  - Delusion [Recovering/Resolving]
  - Weight decreased [Recovering/Resolving]
  - Irritability [Recovering/Resolving]
  - Social avoidant behaviour [Recovering/Resolving]
  - Patient uncooperative [Recovering/Resolving]
